FAERS Safety Report 7909698-4 (Version None)
Quarter: 2011Q4

REPORT INFORMATION
  Report Type: 
  Country: None (occurrence: None)
  Receive Date: 20111111
  Receipt Date: 20111103
  Transmission Date: 20120403
  Serious: Yes (Death)
  Sender: FDA-Public Use
  Company Number: BE-GLAXOSMITHKLINE-B0762014A

PATIENT
  Sex: Male

DRUGS (3)
  1. CLONAZEPAM [Concomitant]
     Indication: CONVULSION
     Dosage: 1MG PER DAY
     Route: 048
  2. LAMICTAL [Suspect]
     Indication: CONVULSION
     Dosage: 50MG TWICE PER DAY
     Route: 048
     Dates: end: 20111005
  3. KEPPRA [Concomitant]
     Indication: CONVULSION
     Dosage: 1000MG TWICE PER DAY
     Route: 048

REACTIONS (7)
  - CONDITION AGGRAVATED [None]
  - HEPATIC FUNCTION ABNORMAL [None]
  - PROTHROMBIN TIME SHORTENED [None]
  - HYPERAMMONAEMIA [None]
  - HYPERKALAEMIA [None]
  - HEPATITIS FULMINANT [None]
  - LIVER FUNCTION TEST ABNORMAL [None]
